FAERS Safety Report 7594229-1 (Version None)
Quarter: 2011Q3

REPORT INFORMATION
  Report Type: 
  Country: None (occurrence: None)
  Receive Date: 20110706
  Receipt Date: 20110627
  Transmission Date: 20111222
  Serious: Yes (Death)
  Sender: FDA-Public Use
  Company Number: DE-GENENTECH-319910

PATIENT

DRUGS (3)
  1. RITUXIMAB [Suspect]
     Indication: LYMPHOMA
     Dosage: 375 MG/M2, UNK
     Route: 042
  2. OXALIPLATIN [Suspect]
     Indication: NON-HODGKIN'S LYMPHOMA UNSPECIFIED HISTOLOGY INDOLENT
     Dosage: 1000 MG/M2, UNK
     Route: 042
  3. GEMCITABINE [Suspect]
     Indication: NON-HODGKIN'S LYMPHOMA UNSPECIFIED HISTOLOGY INDOLENT
     Dosage: 1845 MG, UNK
     Route: 042

REACTIONS (3)
  - DIFFUSE LARGE B-CELL LYMPHOMA [None]
  - DISEASE PROGRESSION [None]
  - NEOPLASM PROGRESSION [None]
